FAERS Safety Report 9739265 (Version 1)
Quarter: 2013Q4

REPORT INFORMATION
  Report Type: Spontaneous
  Country: US (occurrence: US)
  Receive Date: 20131209
  Receipt Date: 20131209
  Transmission Date: 20140711
  Serious: No
  Sender: FDA-Public Use
  Company Number: US-009507513-1311USA006351

PATIENT
  Age: 47 Year
  Sex: Male

DRUGS (4)
  1. ZOCOR [Suspect]
     Indication: BLOOD CHOLESTEROL
     Dosage: UNK
     Route: 048
     Dates: start: 201205, end: 201306
  2. ASCORBIC ACID [Concomitant]
  3. CALCIUM (UNSPECIFIED) [Concomitant]
     Dosage: UNK
  4. VITAMINS (UNSPECIFIED) [Concomitant]

REACTIONS (8)
  - Contusion [Recovered/Resolved]
  - Skin discolouration [Recovered/Resolved with Sequelae]
  - Rash [Recovered/Resolved]
  - Erythema [Recovered/Resolved]
  - Rash [Recovered/Resolved]
  - Contusion [Recovered/Resolved]
  - Skin discolouration [Recovered/Resolved]
  - Erythema [Recovered/Resolved]
